FAERS Safety Report 11249262 (Version 1)
Quarter: 2015Q3

REPORT INFORMATION
  Report Type: Spontaneous
  Country: US (occurrence: US)
  Receive Date: 20150708
  Receipt Date: 20150708
  Transmission Date: 20151125
  Serious: Yes (Hospitalization, Other)
  Sender: FDA-Public Use
  Company Number: US-ELI_LILLY_AND_COMPANY-US200910001266

PATIENT
  Age: 81 Year
  Sex: Male

DRUGS (16)
  1. DEXAMETHASONE. [Concomitant]
     Active Substance: DEXAMETHASONE
  2. ACTOS [Concomitant]
     Active Substance: PIOGLITAZONE HYDROCHLORIDE
     Dosage: 15 MG, DAILY (1/D)
  3. SYNTHROID [Concomitant]
     Active Substance: LEVOTHYROXINE SODIUM
     Dosage: 88 UG, DAILY (1/D)
  4. ZOCOR [Concomitant]
     Active Substance: SIMVASTATIN
     Dosage: 40 MG, DAILY (1/D)
  5. ALIMTA [Suspect]
     Active Substance: PEMETREXED DISODIUM
     Indication: NON-SMALL CELL LUNG CANCER RECURRENT
     Dosage: 1030 MG, UNK
     Route: 042
     Dates: start: 20090805, end: 200909
  6. ALIMTA [Suspect]
     Active Substance: PEMETREXED DISODIUM
     Dosage: 600 MG, UNK
     Route: 042
     Dates: start: 200909, end: 20091001
  7. LANTUS [Concomitant]
     Active Substance: INSULIN GLARGINE
     Dosage: 20 U, DAILY (1/D)
  8. FOLIC ACID. [Concomitant]
     Active Substance: FOLIC ACID
  9. LASIX [Concomitant]
     Active Substance: FUROSEMIDE
     Dosage: 40 MG, DAILY (1/D)
  10. ISOSORBIDE DINITRATE. [Concomitant]
     Active Substance: ISOSORBIDE DINITRATE
     Dosage: 20 MG, DAILY (1/D)
  11. CEFEPIME [Concomitant]
     Active Substance: CEFEPIME HYDROCHLORIDE
     Indication: PNEUMONIA
     Route: 042
  12. ALIMTA [Suspect]
     Active Substance: PEMETREXED DISODIUM
     Dosage: 900 MG, UNK
     Route: 042
     Dates: start: 200909, end: 200909
  13. POTASSIUM CHLORIDE. [Concomitant]
     Active Substance: POTASSIUM CHLORIDE
     Dosage: 10 MEQ, DAILY (1/D)
  14. LISINOPRIL AND HYDROCHLOROTHIAZIDE [Concomitant]
     Active Substance: HYDROCHLOROTHIAZIDE\LISINOPRIL
     Dosage: 1 D/F, DAILY (1/D)
     Route: 048
  15. INSULIN LISPRO [Concomitant]
     Active Substance: INSULIN LISPRO
     Dosage: SLIDING SCALE
  16. DIFLUCAN [Concomitant]
     Active Substance: FLUCONAZOLE
     Dosage: 100 MG, DAILY (1/D)
     Route: 042

REACTIONS (6)
  - Acute kidney injury [Not Recovered/Not Resolved]
  - Pneumonia [Unknown]
  - Cellulitis [Unknown]
  - Pancytopenia [Unknown]
  - Mucosal inflammation [Unknown]
  - Diarrhoea [Unknown]

NARRATIVE: CASE EVENT DATE: 2009
